FAERS Safety Report 5903076-5 (Version None)
Quarter: 2008Q3

REPORT INFORMATION
  Report Type: 
  Country: None (occurrence: None)
  Receive Date: 20080930
  Receipt Date: 20080922
  Transmission Date: 20090109
  Serious: Yes (Hospitalization)
  Sender: FDA-Public Use
  Company Number: CA-ASTRAZENECA-2008UW02233

PATIENT

DRUGS (1)
  1. XYLOCAINE [Suspect]

REACTIONS (5)
  - HYPERSENSITIVITY [None]
  - INJECTION SITE ERYTHEMA [None]
  - MALAISE [None]
  - PYREXIA [None]
  - SEPSIS [None]
